FAERS Safety Report 8853143 (Version 1)
Quarter: 2012Q4

REPORT INFORMATION
  Report Type: 
  Country: DK (occurrence: DK)
  Receive Date: 20121022
  Receipt Date: 20121022
  Transmission Date: 20130627
  Serious: Yes (Hospitalization)
  Sender: FDA-Public Use
  Company Number: DK-TEVA-364265ISR

PATIENT
  Age: 48 Year
  Sex: Female

DRUGS (5)
  1. CLOPIDOGREL [Suspect]
     Dosage: 1 tablet, UNK
  2. ZARATOR [Suspect]
  3. ESTRADIOL [Concomitant]
  4. ATORVASTATIN [Concomitant]
  5. FENTYL [Concomitant]

REACTIONS (3)
  - Muscle spasms [Unknown]
  - Palpitations [Unknown]
  - Chest discomfort [Unknown]
